FAERS Safety Report 23346068 (Version 2)
Quarter: 2024Q1

REPORT INFORMATION
  Report Type: Spontaneous
  Country: US (occurrence: US)
  Receive Date: 20231228
  Receipt Date: 20240206
  Transmission Date: 20240410
  Serious: Yes (Other)
  Sender: FDA-Public Use
  Company Number: US-Blueprint Medicines Corporation-1857

PATIENT
  Sex: Male

DRUGS (1)
  1. AYVAKIT [Suspect]
     Active Substance: AVAPRITINIB
     Indication: Systemic mastocytosis
     Route: 065
     Dates: start: 20230902

REACTIONS (7)
  - Accident at work [Unknown]
  - Wound [Unknown]
  - Brain fog [Recovering/Resolving]
  - Lethargy [Recovering/Resolving]
  - Depression [Unknown]
  - Illness [Unknown]
  - Tryptase [Unknown]
